FAERS Safety Report 25594875 (Version 5)
Quarter: 2025Q3

REPORT INFORMATION
  Report Type: Report from Study
  Country: US (occurrence: US)
  Receive Date: 20250723
  Receipt Date: 20250903
  Transmission Date: 20251020
  Serious: Yes (Other)
  Sender: ACADIA PHARMACEUTICALS
  Company Number: US-ACADIA PHARMACEUTICALS INC.-ACA-2025-PIM-008451

PATIENT
  Sex: Male

DRUGS (25)
  1. NUPLAZID [Suspect]
     Active Substance: PIMAVANSERIN TARTRATE
     Indication: Parkinson^s disease psychosis
     Dosage: 34 MILLIGRAM, QD
     Route: 048
  2. CREXONT [Suspect]
     Active Substance: CARBIDOPA\LEVODOPA
     Indication: Mania
     Route: 065
  3. CREXONT [Suspect]
     Active Substance: CARBIDOPA\LEVODOPA
     Indication: Depression
  4. CITALOPRAM [Concomitant]
     Active Substance: CITALOPRAM
  5. JARDIANCE [Concomitant]
     Active Substance: EMPAGLIFLOZIN
  6. LATANOPROST [Concomitant]
     Active Substance: LATANOPROST
  7. CLONAZEPAM [Concomitant]
     Active Substance: CLONAZEPAM
  8. DONEPEZIL [Concomitant]
     Active Substance: DONEPEZIL
  9. SENOKOT [Concomitant]
     Active Substance: SENNOSIDES
  10. VITAMIN D3 [Concomitant]
     Active Substance: CHOLECALCIFEROL
  11. GLIPIZIDE [Concomitant]
     Active Substance: GLIPIZIDE
  12. ASPIRIN [Concomitant]
     Active Substance: ASPIRIN
  13. ALPRAZOLAM [Concomitant]
     Active Substance: ALPRAZOLAM
  14. PRAMIPEXOLE DIHYDROCHLORIDE [Concomitant]
     Active Substance: PRAMIPEXOLE DIHYDROCHLORIDE
  15. PRASUGREL [Concomitant]
     Active Substance: PRASUGREL
  16. VALGANCICLOVIR [Concomitant]
     Active Substance: VALGANCICLOVIR
  17. DOCUSATE [Concomitant]
     Active Substance: DOCUSATE
  18. LOSARTAN [Concomitant]
     Active Substance: LOSARTAN
  19. PANTOPRAZOLE [Concomitant]
     Active Substance: PANTOPRAZOLE
  20. DUTASTERIDE [Concomitant]
     Active Substance: DUTASTERIDE
  21. METFORMIN [Concomitant]
     Active Substance: METFORMIN HYDROCHLORIDE
  22. NITROGLYCERIN [Concomitant]
     Active Substance: NITROGLYCERIN
  23. VENLAFAXINE [Concomitant]
     Active Substance: VENLAFAXINE HYDROCHLORIDE
  24. GEMTESA [Concomitant]
     Active Substance: VIBEGRON
  25. SINEMET [Concomitant]
     Active Substance: CARBIDOPA\LEVODOPA

REACTIONS (10)
  - Glaucoma [Unknown]
  - Hallucination [Not Recovered/Not Resolved]
  - Obsessive thoughts [Unknown]
  - Depression [Unknown]
  - Depressed mood [Unknown]
  - Mania [Unknown]
  - Delusion [Unknown]
  - Vision blurred [Unknown]
  - Chest pain [Unknown]
  - Product use issue [Not Recovered/Not Resolved]
